FAERS Safety Report 5609606-5 (Version None)
Quarter: 2008Q1

REPORT INFORMATION
  Report Type: 
  Country: None (occurrence: None)
  Receive Date: 20080131
  Receipt Date: 20080108
  Transmission Date: 20080703
  Serious: No
  Sender: FDA-Public Use
  Company Number: US-BOEHRINGER INGELHEIM GMBH, GERMANY-2007-BP-26261BP

PATIENT
  Age: 81 Year
  Sex: Female

DRUGS (8)
  1. SPIRIVA [Suspect]
     Indication: CHRONIC OBSTRUCTIVE PULMONARY DISEASE
     Route: 055
     Dates: start: 20070601
  2. LIPITOR [Concomitant]
  3. ZYRTEC [Concomitant]
  4. GLIPIZIDE [Concomitant]
  5. DETROL [Concomitant]
  6. FOSINOPRIL/HCTZ [Concomitant]
  7. LEVOTHYROXINE SODIUM [Concomitant]
  8. ADVAIR DISKUS 100/50 [Concomitant]

REACTIONS (4)
  - CONFUSIONAL STATE [None]
  - DRUG INEFFECTIVE [None]
  - MALAISE [None]
  - MENTAL STATUS CHANGES [None]
